FAERS Safety Report 10541456 (Version 5)
Quarter: 2016Q2

REPORT INFORMATION
  Report Type: Report from Study
  Country: US (occurrence: US)
  Receive Date: 20141024
  Receipt Date: 20160426
  Transmission Date: 20160815
  Serious: Yes (Hospitalization, Other)
  Sender: FDA-Public Use
  Company Number: US-SA-2013SA121984

PATIENT
  Age: 70 Year
  Sex: Female
  Weight: 97.97 kg

DRUGS (17)
  1. VITAMIN C [Concomitant]
     Active Substance: ASCORBIC ACID
  2. AUBAGIO [Suspect]
     Active Substance: TERIFLUNOMIDE
     Indication: MULTIPLE SCLEROSIS
     Route: 048
     Dates: start: 20131119
  3. AUBAGIO [Suspect]
     Active Substance: TERIFLUNOMIDE
     Indication: MULTIPLE SCLEROSIS
     Route: 048
     Dates: start: 201408, end: 20141201
  4. NEURONTIN [Concomitant]
     Active Substance: GABAPENTIN
     Dates: start: 20121231
  5. AUBAGIO [Suspect]
     Active Substance: TERIFLUNOMIDE
     Indication: MULTIPLE SCLEROSIS
     Route: 048
     Dates: start: 20140102, end: 201407
  6. SURFAK [Concomitant]
  7. VALIUM [Concomitant]
     Active Substance: DIAZEPAM
  8. ASPIRIN. [Concomitant]
     Active Substance: ASPIRIN
     Route: 048
  9. OMEGA-3 ACIDS [Concomitant]
     Active Substance: OMEGA-3 FATTY ACIDS
  10. NEURONTIN [Concomitant]
     Active Substance: GABAPENTIN
  11. ATENOLOL. [Concomitant]
     Active Substance: ATENOLOL
     Dates: start: 20020211
  12. LETROZOLE. [Concomitant]
     Active Substance: LETROZOLE
  13. VITAMIN D3 [Concomitant]
     Active Substance: CHOLECALCIFEROL
     Dosage: DOSE:2000 UNIT(S)
  14. CRESTOR [Concomitant]
     Active Substance: ROSUVASTATIN CALCIUM
     Dosage: FREQUENCY:M-W-F
  15. LYRICA [Concomitant]
     Active Substance: PREGABALIN
     Dates: start: 20140507
  16. PANTHENOL/RETINOL/THIAMINE HYDROCHLORIDE/ASCORBIC ACID/ERGOCALCIFEROL/FOLIC ACID/RIBOFLAVIN/NICOTINA [Concomitant]
  17. RESTASIS [Concomitant]
     Active Substance: CYCLOSPORINE
     Route: 031

REACTIONS (14)
  - Pain in extremity [Unknown]
  - Rash [Unknown]
  - Muscle spasms [Not Recovered/Not Resolved]
  - Pain in extremity [Not Recovered/Not Resolved]
  - Rash macular [Recovered/Resolved]
  - Loss of consciousness [Unknown]
  - Balance disorder [Unknown]
  - Pneumonia [Unknown]
  - Fall [Unknown]
  - Hypoaesthesia [Unknown]
  - Drug dose omission [Unknown]
  - Fungal infection [Unknown]
  - Paraesthesia [Unknown]
  - Alopecia [Unknown]

NARRATIVE: CASE EVENT DATE: 201311
